FAERS Safety Report 9016919 (Version 1)
Quarter: 2013Q1

REPORT INFORMATION
  Report Type: Spontaneous
  Country: US (occurrence: US)
  Receive Date: 20130117
  Receipt Date: 20130117
  Transmission Date: 20140127
  Serious: Yes (Other)
  Sender: FDA-Public Use
  Company Number: US-009507513-0911USA00642

PATIENT
  Age: 34 Year
  Sex: Female
  Weight: 105.23 kg

DRUGS (2)
  1. SINGULAIR [Suspect]
     Indication: ASTHMA
     Dosage: UNK
     Route: 048
     Dates: start: 20081215, end: 20090321
  2. SINGULAIR [Suspect]
     Indication: MULTIPLE ALLERGIES
     Dosage: UNK
     Route: 048
     Dates: start: 20090414, end: 20090418

REACTIONS (5)
  - Apathy [Recovered/Resolved]
  - Suicidal ideation [Recovered/Resolved]
  - Mood swings [Recovered/Resolved]
  - Crying [Recovered/Resolved]
  - Depression [Recovered/Resolved]
